FAERS Safety Report 6821226-3 (Version None)
Quarter: 2010Q3

REPORT INFORMATION
  Report Type: 
  Country: None (occurrence: None)
  Receive Date: 20100707
  Receipt Date: 20080519
  Transmission Date: 20110219
  Serious: No
  Sender: FDA-Public Use
  Company Number: US-PFIZER INC-2008027581

PATIENT
  Sex: Female

DRUGS (2)
  1. SERTRALINE [Suspect]
     Indication: DEPRESSION
     Route: 048
     Dates: start: 20070101, end: 20070301
  2. SERTRALINE [Suspect]
     Indication: ANXIETY

REACTIONS (4)
  - ABNORMAL BEHAVIOUR [None]
  - ANXIETY [None]
  - DEPRESSED MOOD [None]
  - DRUG INEFFECTIVE [None]
